FAERS Safety Report 12062973 (Version 1)
Quarter: 2016Q1

REPORT INFORMATION
  Report Type: Spontaneous
  Country: US (occurrence: US)
  Receive Date: 20160210
  Receipt Date: 20160210
  Transmission Date: 20160526
  Serious: No
  Sender: FDA-Public Use
  Company Number: US-ALLERGAN-1415743US

PATIENT
  Age: 54 Year
  Sex: Female

DRUGS (2)
  1. BOTOX COSMETIC [Suspect]
     Active Substance: ONABOTULINUMTOXINA
     Indication: SKIN WRINKLING
     Dosage: 35 UNITS, SINGLE
     Route: 030
     Dates: start: 20140509, end: 20140509
  2. VIVELLE [Concomitant]
     Active Substance: ESTRADIOL
     Indication: HORMONE REPLACEMENT THERAPY
     Dosage: UNK

REACTIONS (9)
  - Fatigue [Recovered/Resolved]
  - Off label use [Unknown]
  - Swelling face [Recovered/Resolved]
  - Skin exfoliation [Recovered/Resolved]
  - Oropharyngeal discomfort [Recovered/Resolved]
  - Discomfort [Recovered/Resolved]
  - Erythema [Recovered/Resolved]
  - Eyelid sensory disorder [Recovered/Resolved]
  - Urticaria [Recovered/Resolved]
